FAERS Safety Report 6931132-1 (Version None)
Quarter: 2010Q3

REPORT INFORMATION
  Report Type: 
  Country: None (occurrence: None)
  Receive Date: 20100817
  Receipt Date: 20100817
  Transmission Date: 20110219
  Serious: Yes (Other)
  Sender: FDA-Public Use
  Company Number: None

PATIENT
  Age: 30 Year
  Sex: Female
  Weight: 75.7507 kg

DRUGS (1)
  1. MIRENA [Suspect]
     Indication: CONTRACEPTION
     Dates: start: 20100707, end: 20100816

REACTIONS (4)
  - ALOPECIA [None]
  - HAEMORRHAGE [None]
  - HEADACHE [None]
  - PAIN IN EXTREMITY [None]
